FAERS Safety Report 17858524 (Version 2)
Quarter: 2020Q2

REPORT INFORMATION
  Report Type: Report from Study
  Country: None (occurrence: US)
  Receive Date: 20200604
  Receipt Date: 20200605
  Transmission Date: 20200714
  Serious: No
  Sender: FDA-Public Use
  Company Number: US-US WORLDMEDS, LLC-USW201910-001897

PATIENT
  Age: 62 Year
  Sex: Male
  Weight: 86.18 kg

DRUGS (7)
  1. APOKYN [Suspect]
     Active Substance: APOMORPHINE HYDROCHLORIDE
     Indication: PARKINSON^S DISEASE
     Route: 058
     Dates: start: 20191003
  2. CARBIDOPA-LEVODOPA [Concomitant]
     Active Substance: CARBIDOPA\LEVODOPA
     Dosage: 25 MG-100 MG ORAL TABLET, TAKE 1 TABLET FOUR TIMES A DAY X 1 WEEK
     Route: 048
  3. SINEMET CR [Concomitant]
     Active Substance: CARBIDOPA\LEVODOPA
     Dosage: 50 MG-200 MG ORAL TABLET, 1 TABLET BY MOUTH AT BEDTIME
     Route: 048
  4. ZOLOFT [Concomitant]
     Active Substance: SERTRALINE HYDROCHLORIDE
     Dosage: 50 MG ORAL TABLET, 50 MG = 1 TABLET, BY MOUTH DAILY, TAKE 0.5 (25 MG) TABLET DAILY X 2 WEEKS, THEN I
     Route: 048
  5. TRAZODONE [Concomitant]
     Active Substance: TRAZODONE HYDROCHLORIDE
     Indication: INSOMNIA
     Dosage: 50 MG ORAL TABLET, 25 MG = 0.5 TABLET BY MOUTH AT BEDTIME AS REQUIRED
     Route: 048
  6. UBIQUINONE COENZYME Q 10 [Concomitant]
     Dosage: 50 MG ORAL CAPSULE, 1 CAPSULE BY MOUTH DAILY
     Route: 048
  7. CLARITIN-D NOS [Concomitant]
     Active Substance: LORATADINE\PSEUDOEPHEDRINE SULFATE
     Dosage: 1 TABLET BY MOUTH DAILY
     Route: 048

REACTIONS (4)
  - Chills [Recovered/Resolved]
  - Nausea [Recovered/Resolved]
  - Hyperhidrosis [Recovered/Resolved]
  - Feeling hot [Recovered/Resolved]

NARRATIVE: CASE EVENT DATE: 20191003
